FAERS Safety Report 25699219 (Version 1)
Quarter: 2025Q3

REPORT INFORMATION
  Report Type: Spontaneous
  Country: US (occurrence: US)
  Receive Date: 20250819
  Receipt Date: 20250819
  Transmission Date: 20251020
  Serious: No
  Sender: IPSEN BIOPHARMACEUTICALS, INC.
  Company Number: US-IPSEN Group, Research and Development-2025-20197

PATIENT

DRUGS (4)
  1. DYSPORT [Suspect]
     Active Substance: ABOBOTULINUMTOXINA
     Indication: Skin wrinkling
     Route: 065
     Dates: start: 20250802, end: 20250802
  2. DYSPORT [Suspect]
     Active Substance: ABOBOTULINUMTOXINA
     Indication: Skin wrinkling
  3. DYSPORT [Suspect]
     Active Substance: ABOBOTULINUMTOXINA
     Indication: Skin wrinkling
  4. DYSPORT [Suspect]
     Active Substance: ABOBOTULINUMTOXINA
     Indication: Off label use

REACTIONS (9)
  - Panic attack [Unknown]
  - Chest pain [Unknown]
  - Product preparation issue [Unknown]
  - Off label use [Unknown]
  - Throat tightness [Unknown]
  - Eyelid ptosis [Unknown]
  - Vision blurred [Unknown]
  - Dizziness [Unknown]
  - Head discomfort [Unknown]

NARRATIVE: CASE EVENT DATE: 20250802
